FAERS Safety Report 13030943 (Version 2)
Quarter: 2017Q1

REPORT INFORMATION
  Report Type: Report from Study
  Country: US (occurrence: US)
  Receive Date: 20161215
  Receipt Date: 20170220
  Transmission Date: 20170428
  Serious: Yes (Other)
  Sender: FDA-Public Use
  Company Number: US-UCBSA-2016047334

PATIENT
  Age: 58 Year
  Sex: Male
  Weight: 86 kg

DRUGS (9)
  1. AZASAN [Concomitant]
     Active Substance: AZATHIOPRINE
     Indication: PRODUCT USED FOR UNKNOWN INDICATION
     Dosage: 2 DF, ONCE DAILY (QD), STRENGTH 100 MG,
     Route: 048
  2. MESALAMINE. [Concomitant]
     Active Substance: MESALAMINE
     Dosage: UNK
     Dates: start: 20130426, end: 20130916
  3. ASACOL [Concomitant]
     Active Substance: MESALAMINE
     Indication: PRODUCT USED FOR UNKNOWN INDICATION
     Dosage: 400 MG, 2X/DAY (BID), 2 TABS
  4. CERTOLIZUMAB PEGOL CD [Suspect]
     Active Substance: CERTOLIZUMAB PEGOL
     Dosage: 200 MG, UNK
     Dates: start: 20100709
  5. MESALAMINE. [Concomitant]
     Active Substance: MESALAMINE
     Dosage: UNK
     Dates: end: 20130426
  6. CERTOLIZUMAB PEGOL CD [Suspect]
     Active Substance: CERTOLIZUMAB PEGOL
     Indication: CROHN^S DISEASE
     Dosage: 400 MG, EV 4 WEEKS
     Route: 058
     Dates: start: 20100120, end: 20100609
  7. MESALAMINE. [Concomitant]
     Active Substance: MESALAMINE
     Indication: PRODUCT USED FOR UNKNOWN INDICATION
     Dosage: UNK
     Dates: start: 20091124, end: 201107
  8. ASPIRIN. [Concomitant]
     Active Substance: ASPIRIN
     Indication: PRODUCT USED FOR UNKNOWN INDICATION
     Dosage: 325MG PRN, AS NEEDED
  9. MESALAMINE. [Concomitant]
     Active Substance: MESALAMINE
     Dosage: UNK
     Dates: start: 20161107

REACTIONS (1)
  - Neoplasm malignant [Recovered/Resolved]

NARRATIVE: CASE EVENT DATE: 201010
